FAERS Safety Report 6974619-8 (Version None)
Quarter: 2010Q3

REPORT INFORMATION
  Report Type: 
  Country: None (occurrence: None)
  Receive Date: 20100909
  Receipt Date: 20081114
  Transmission Date: 20110219
  Serious: No
  Sender: FDA-Public Use
  Company Number: US-WYE-H06854508

PATIENT
  Age: 37 Year
  Sex: Female
  Weight: 68.1 kg

DRUGS (4)
  1. PROTONIX [Suspect]
     Indication: HIATUS HERNIA
     Route: 048
     Dates: start: 20030101
  2. ZANTAC [Concomitant]
  3. ALCOHOL [Interacting]
     Dosage: UNSPECIFIED
     Route: 048
  4. METOPROLOL TARTRATE [Concomitant]

REACTIONS (5)
  - ABDOMINAL PAIN [None]
  - ALCOHOL INTERACTION [None]
  - DIARRHOEA [None]
  - DYSPEPSIA [None]
  - NAUSEA [None]
